FAERS Safety Report 6406919-4 (Version None)
Quarter: 2009Q4

REPORT INFORMATION
  Report Type: 
  Country: None (occurrence: None)
  Receive Date: 20091020
  Receipt Date: 20091012
  Transmission Date: 20100525
  Serious: Yes (Other)
  Sender: FDA-Public Use
  Company Number: US-ABBOTT-09P-163-0602314-00

PATIENT
  Sex: Female
  Weight: 86.26 kg

DRUGS (11)
  1. HUMIRA [Suspect]
     Indication: RHEUMATOID ARTHRITIS
     Dates: start: 20090605
  2. HUMIRA [Suspect]
     Indication: CROHN'S DISEASE
  3. BUSPAR [Concomitant]
     Indication: ANXIETY
  4. POTASSIUM CHLORIDE [Concomitant]
     Indication: ELECTROLYTE SUBSTITUTION THERAPY
  5. METOCLOPRAMIDE [Concomitant]
     Indication: IMPAIRED GASTRIC EMPTYING
  6. ALLOPURINOL [Concomitant]
     Indication: GASTROOESOPHAGEAL REFLUX DISEASE
  7. DETROL LA [Concomitant]
     Indication: POLLAKIURIA
  8. NEXIUM [Concomitant]
     Indication: GASTROOESOPHAGEAL REFLUX DISEASE
  9. MERCAPTOPURINE [Concomitant]
     Indication: CROHN'S DISEASE
  10. PREDNISONE [Concomitant]
     Indication: CROHN'S DISEASE
  11. BONIVA [Concomitant]
     Indication: OSTEOPOROSIS

REACTIONS (4)
  - COUGH [None]
  - CYSTITIS [None]
  - HERNIA [None]
  - SINUSITIS [None]
